FAERS Safety Report 23994609 (Version 1)
Quarter: 2024Q2

REPORT INFORMATION
  Report Type: Spontaneous
  Country: US (occurrence: None)
  Receive Date: 20240619
  Receipt Date: 20240619
  Transmission Date: 20240715
  Serious: Yes (unspecified)
  Sender: FDA-Public Use
  Company Number: None

PATIENT
  Age: 66 Year
  Sex: Female
  Weight: 71.55 kg

DRUGS (6)
  1. ATORVASTATIN [Suspect]
     Active Substance: ATORVASTATIN
     Indication: Blood cholesterol increased
     Dosage: 90 TABLETS DAILY ORAL
     Route: 048
     Dates: start: 20240201, end: 20240619
  2. ARMODAFINIL [Concomitant]
     Active Substance: ARMODAFINIL
  3. LEVOTHYROXINE [Concomitant]
     Active Substance: LEVOTHYROXINE\LEVOTHYROXINE SODIUM
  4. LURASIDONE HYDROCHLORIDE [Concomitant]
     Active Substance: LURASIDONE HYDROCHLORIDE
  5. PHILLIPS MILK OF MAGNESIUM [Concomitant]
  6. CENTRUM WOMEN 50+ GUMMIES [Concomitant]

REACTIONS (9)
  - Back pain [None]
  - Arthralgia [None]
  - Musculoskeletal stiffness [None]
  - Mobility decreased [None]
  - Brain fog [None]
  - Cough [None]
  - Chills [None]
  - Spinal disorder [None]
  - Toxicity to various agents [None]

NARRATIVE: CASE EVENT DATE: 20240430
